FAERS Safety Report 6667398-5 (Version None)
Quarter: 2010Q2

REPORT INFORMATION
  Report Type: 
  Country: None (occurrence: None)
  Receive Date: 20100405
  Receipt Date: 20100325
  Transmission Date: 20101027
  Serious: Yes (Other)
  Sender: FDA-Public Use
  Company Number: PHHY2010FR19857

PATIENT
  Age: 54 Year
  Sex: Female

DRUGS (3)
  1. RASILEZ [Suspect]
     Dosage: 300 MG, UNK
  2. IMUREL [Concomitant]
  3. CORTICOSTEROIDS [Concomitant]
     Dosage: LOW DOSAGE EVERY 2 DAYS

REACTIONS (3)
  - BLOOD CREATINE PHOSPHOKINASE INCREASED [None]
  - MYOSITIS [None]
  - TRANSAMINASES INCREASED [None]
